FAERS Safety Report 9120638 (Version 3)
Quarter: 2013Q2

REPORT INFORMATION
  Report Type: Report from Study
  Country: DE (occurrence: DE)
  Receive Date: 20130226
  Receipt Date: 20130616
  Transmission Date: 20140414
  Serious: Yes (Hospitalization)
  Sender: FDA-Public Use
  Company Number: DE-UCBSA-078844

PATIENT
  Age: 39 Year
  Sex: Male

DRUGS (6)
  1. VIMPAT [Suspect]
     Indication: EPILEPSY
     Dosage: DAILY DOSE-100 MG/DAY
     Dates: start: 20110216, end: 2011
  2. VIMPAT [Suspect]
     Indication: EPILEPSY
     Dosage: DAILY DOSE-200 MG
     Dates: start: 2011, end: 2011
  3. VIMPAT [Suspect]
     Indication: EPILEPSY
     Dosage: DAILY DOSE-300 MG
     Dates: start: 2011, end: 20110701
  4. LAMOTRIGINE [Concomitant]
     Indication: EPILEPSY
     Dosage: 500 MG/DAY
  5. LEVETIRACETAM [Concomitant]
     Indication: EPILEPSY
     Dosage: DAILY DOSE: 1500MG
     Dates: end: 2011
  6. OXCARBAZEPINE [Concomitant]
     Indication: EPILEPSY
     Dosage: DAILY DOSE: 2100 MG

REACTIONS (3)
  - Epilepsy [Unknown]
  - Fatigue [Unknown]
  - Coordination abnormal [Unknown]
